FAERS Safety Report 13175418 (Version 1)
Quarter: 2017Q1

REPORT INFORMATION
  Report Type: Spontaneous
  Country: AR (occurrence: AR)
  Receive Date: 20170201
  Receipt Date: 20170201
  Transmission Date: 20170428
  Serious: Yes (Other)
  Sender: FDA-Public Use
  Company Number: AR-PFIZER INC-2016600218

PATIENT
  Age: 62 Year
  Sex: Male

DRUGS (1)
  1. SUTENT [Suspect]
     Active Substance: SUNITINIB MALATE
     Indication: METASTATIC RENAL CELL CARCINOMA
     Dosage: UNK
     Dates: start: 20160616, end: 20170112

REACTIONS (8)
  - Decreased immune responsiveness [Recovering/Resolving]
  - Weight decreased [Recovering/Resolving]
  - Mouth haemorrhage [Recovering/Resolving]
  - Abasia [Recovering/Resolving]
  - Lip disorder [Recovering/Resolving]
  - Diarrhoea [Recovering/Resolving]
  - Skin exfoliation [Recovering/Resolving]
  - Decreased appetite [Recovering/Resolving]

NARRATIVE: CASE EVENT DATE: 20161215
